FAERS Safety Report 5252452-5 (Version None)
Quarter: 2007Q1

REPORT INFORMATION
  Report Type: 
  Country: None (occurrence: None)
  Receive Date: 20070301
  Receipt Date: 20061115
  Transmission Date: 20070707
  Serious: No
  Sender: FDA-Public Use
  Company Number: US-BRISTOL-MYERS SQUIBB COMPANY-13579735

PATIENT
  Sex: Female

DRUGS (5)
  1. ERBITUX [Suspect]
     Route: 042
     Dates: start: 20061011
  2. IRINOTECAN HCL [Concomitant]
     Dates: start: 20061011
  3. BENADRYL [Concomitant]
     Indication: PREMEDICATION
  4. ZOFRAN [Concomitant]
     Indication: PREMEDICATION
  5. DECADRON [Concomitant]
     Indication: PREMEDICATION

REACTIONS (1)
  - RASH [None]
